FAERS Safety Report 25892053 (Version 3)
Quarter: 2025Q4

REPORT INFORMATION
  Report Type: Spontaneous
  Country: GB (occurrence: GB)
  Receive Date: 20251007
  Receipt Date: 20251113
  Transmission Date: 20260118
  Serious: No
  Sender: PFIZER
  Company Number: GB-PFIZER INC-PV202500117868

PATIENT
  Age: 13 Year
  Sex: Female

DRUGS (2)
  1. GENOTROPIN [Suspect]
     Active Substance: SOMATROPIN
     Indication: Hypopituitarism
     Dosage: 1.3 MG, DAILY (ON)
     Route: 058
  2. GENOTROPIN [Suspect]
     Active Substance: SOMATROPIN
     Indication: Hypothalamo-pituitary disorder

REACTIONS (3)
  - Drug ineffective [Unknown]
  - Device information output issue [Unknown]
  - Device failure [Unknown]
